FAERS Safety Report 26127989 (Version 1)
Quarter: 2025Q4

REPORT INFORMATION
  Report Type: Spontaneous
  Country: US (occurrence: US)
  Receive Date: 20251206
  Receipt Date: 20251206
  Transmission Date: 20260117
  Serious: Yes (Death, Other)
  Sender: AMGEN
  Company Number: US-AMGEN-USASP2025235893

PATIENT

DRUGS (1)
  1. INFLIXIMAB [Suspect]
     Active Substance: INFLIXIMAB
     Indication: Exposure during pregnancy
     Dosage: UNK
     Route: 064

REACTIONS (5)
  - Malignant melanoma [Fatal]
  - Premature baby [Fatal]
  - Hypothyroidism [Unknown]
  - Congenital hypothyroidism [Unknown]
  - Off label use [Unknown]
